FAERS Safety Report 10080054 (Version 1)
Quarter: 2014Q2

REPORT INFORMATION
  Report Type: Spontaneous
  Country: RS (occurrence: RS)
  Receive Date: 20140415
  Receipt Date: 20140415
  Transmission Date: 20141212
  Serious: Yes (Life-Threatening)
  Sender: FDA-Public Use
  Company Number: RS-ACTAVIS-2014-07947

PATIENT
  Sex: Female

DRUGS (1)
  1. DOCETAXEL [Suspect]
     Indication: CANCER PAIN
     Dosage: 170 MG, DAILY
     Route: 042
     Dates: start: 20140210

REACTIONS (5)
  - Pneumonia [Unknown]
  - Toxicity to various agents [Unknown]
  - Fatigue [Unknown]
  - Cough [Unknown]
  - Apnoea [Unknown]
